FAERS Safety Report 5804208-X (Version None)
Quarter: 2008Q3

REPORT INFORMATION
  Report Type: 
  Country: None (occurrence: None)
  Receive Date: 20080709
  Receipt Date: 20080701
  Transmission Date: 20090109
  Serious: Yes (Other)
  Sender: FDA-Public Use
  Company Number: US-AMGEN-QUU291830

PATIENT
  Sex: Female

DRUGS (2)
  1. ENBREL [Suspect]
     Indication: RHEUMATOID ARTHRITIS
     Dates: start: 19980101, end: 20080617
  2. UNSPECIFIED OPHTHALMIC PREPARATION [Concomitant]
     Route: 047

REACTIONS (5)
  - BREAST OPERATION [None]
  - HERPES ZOSTER [None]
  - HYSTERECTOMY [None]
  - PRESYNCOPE [None]
  - SCIATICA [None]
